FAERS Safety Report 4352299-8 (Version None)
Quarter: 2004Q2

REPORT INFORMATION
  Report Type: 
  Country: None (occurrence: None)
  Receive Date: 20040504
  Receipt Date: 20040426
  Transmission Date: 20050107
  Serious: Yes (Hospitalization)
  Sender: FDA-Public Use
  Company Number: 200413228US

PATIENT
  Sex: Male
  Weight: 88.63 kg

DRUGS (20)
  1. ARAVA [Suspect]
     Indication: RHEUMATOID ARTHRITIS
     Route: 048
     Dates: start: 20001201, end: 20030302
  2. PREDNISONE [Concomitant]
     Route: 048
  3. PRILOSEC [Concomitant]
  4. VOLTAREN [Concomitant]
  5. MIACALCIN [Concomitant]
     Dosage: DOSE: NOT PROVIDED
  6. CALCIUM [Concomitant]
     Dosage: DOSE: NOT PROVIDED
  7. VITAMIN D [Concomitant]
     Dosage: DOSE: NOT PROVIDED
  8. SKELAXIN [Concomitant]
     Dosage: DOSE: NOT PROVIDED
  9. PLAQUENIL [Concomitant]
  10. ULTRAM [Concomitant]
     Dosage: DOSE: NOT PROVIDED
  11. REMICADE [Concomitant]
  12. FOSAMAX [Concomitant]
  13. MEDROL [Concomitant]
     Dosage: DOSE: NOT PROVIDED
  14. NEURONTIN [Concomitant]
  15. ENBREL [Concomitant]
     Dosage: DOSE: NOT PROVIDED
  16. METHOTREXATE [Concomitant]
     Dosage: DOSE: NOT PROVIDED
  17. SULFASALAZINE [Concomitant]
     Dosage: DOSE: NOT PROVIDED
  18. ST. JOHN'S WORT [Concomitant]
     Dosage: DOSE: NOT PROVIDED
  19. PROTONIX [Concomitant]
     Dosage: DOSE: NOT PROVIDED
  20. TYLENOL PM [Concomitant]
     Dosage: DOSE: 2 TABLETS

REACTIONS (8)
  - ABDOMINAL PAIN UPPER [None]
  - ALANINE AMINOTRANSFERASE INCREASED [None]
  - ASPARTATE AMINOTRANSFERASE INCREASED [None]
  - BLOOD ALKALINE PHOSPHATASE INCREASED [None]
  - NAUSEA [None]
  - PYREXIA [None]
  - VOMITING [None]
  - WHITE BLOOD CELL COUNT INCREASED [None]
